FAERS Safety Report 24801403 (Version 3)
Quarter: 2025Q1

REPORT INFORMATION
  Report Type: Spontaneous
  Country: MX (occurrence: MX)
  Receive Date: 20250102
  Receipt Date: 20250115
  Transmission Date: 20250409
  Serious: Yes (Life-Threatening, Hospitalization, Disabling, Other)
  Sender: SANDOZ
  Company Number: MX-002147023-NVSC2021MX127013

PATIENT
  Sex: Female
  Weight: 83 kg

DRUGS (16)
  1. ALLOPURINOL [Suspect]
     Active Substance: ALLOPURINOL
     Indication: Blood uric acid increased
     Dosage: 1 DF, QD
     Route: 065
     Dates: end: 20240202
  2. TASIGNA [Suspect]
     Active Substance: NILOTINIB
     Dosage: 200 MG, QD
     Route: 048
     Dates: start: 201610
  3. TASIGNA [Suspect]
     Active Substance: NILOTINIB
     Dosage: 200 MG, QD,2 OF 200 MG, QD
     Route: 048
     Dates: start: 201610
  4. TASIGNA [Suspect]
     Active Substance: NILOTINIB
     Dosage: 400 MG, QD,400 MG, QD (2 CAPSULES OF 200 MG) (IN THE MORNING)
     Route: 048
  5. TASIGNA [Suspect]
     Active Substance: NILOTINIB
     Dosage: 1 DF, QD
     Route: 048
  6. TASIGNA [Suspect]
     Active Substance: NILOTINIB
     Dosage: 800 MG, QD,2 OF 200MG/ 400MG (TWICE A DAY/ FASTING AND IN THE AFTERNOON, NIGHT WITH 2 HOURS AFTER LU
     Route: 048
  7. TASIGNA [Suspect]
     Active Substance: NILOTINIB
     Dosage: 200 MG, QD,1 OF 200 MG, QD
     Route: 048
     Dates: start: 2016
  8. TASIGNA [Suspect]
     Active Substance: NILOTINIB
     Dosage: 1 DF, QD
     Route: 048
     Dates: start: 20240227, end: 20240723
  9. TASIGNA [Suspect]
     Active Substance: NILOTINIB
     Dosage: 2 DF, QD
     Route: 048
     Dates: start: 201610, end: 20240226
  10. TASIGNA [Suspect]
     Active Substance: NILOTINIB
     Route: 065
     Dates: start: 202407
  11. TASIGNA [Suspect]
     Active Substance: NILOTINIB
     Indication: Chronic myeloid leukaemia
     Dosage: 800 MG, QD
     Route: 048
  12. TASIGNA [Suspect]
     Active Substance: NILOTINIB
     Route: 048
  13. DASATINIB [Concomitant]
     Active Substance: DASATINIB
     Indication: Chronic myeloid leukaemia
     Route: 048
     Dates: start: 2013, end: 2016
  14. INSULIN DETEMIR [Concomitant]
     Active Substance: INSULIN DETEMIR
     Indication: Diabetes mellitus
     Route: 058
     Dates: start: 2015
  15. LORATADINE [Concomitant]
     Active Substance: LORATADINE
     Indication: Product used for unknown indication
     Route: 065
  16. FISH OIL [Concomitant]
     Active Substance: FISH OIL
     Indication: Vitamin supplementation
     Dosage: 1 DF, QD
     Route: 048
     Dates: start: 202309

REACTIONS (101)
  - Sepsis [Unknown]
  - Renal failure [Unknown]
  - Organ failure [Unknown]
  - Cardiac failure [Unknown]
  - Thrombosis [Unknown]
  - Arterial disorder [Recovered/Resolved with Sequelae]
  - Peripheral ischaemia [Unknown]
  - Limb injury [Unknown]
  - Hypoxia [Unknown]
  - Oxygen saturation decreased [Unknown]
  - Wound complication [Unknown]
  - Blood electrolytes increased [Unknown]
  - Monoplegia [Not Recovered/Not Resolved]
  - Puncture site inflammation [Recovering/Resolving]
  - Peripheral artery occlusion [Recovered/Resolved with Sequelae]
  - Necrosis [Unknown]
  - Blood potassium increased [Unknown]
  - Limb discomfort [Unknown]
  - Pain in extremity [Recovered/Resolved with Sequelae]
  - Diabetic neuropathy [Recovered/Resolved with Sequelae]
  - Mobility decreased [Not Recovered/Not Resolved]
  - Weight increased [Not Recovered/Not Resolved]
  - Weight decreased [Recovered/Resolved]
  - Pain [Not Recovered/Not Resolved]
  - Suicidal ideation [Not Recovered/Not Resolved]
  - Muscle atrophy [Not Recovered/Not Resolved]
  - Emotional distress [Unknown]
  - Back pain [Not Recovered/Not Resolved]
  - Gait inability [Unknown]
  - Peripheral swelling [Not Recovered/Not Resolved]
  - Pain in extremity [Not Recovered/Not Resolved]
  - Pulmonary oedema [Recovering/Resolving]
  - Gangrene [Unknown]
  - Pulmonary congestion [Unknown]
  - Leukaemia recurrent [Unknown]
  - Loss of consciousness [Unknown]
  - Joint injury [Unknown]
  - Diabetes mellitus inadequate control [Unknown]
  - Type 2 diabetes mellitus [Unknown]
  - Discouragement [Unknown]
  - Fear [Unknown]
  - Anxiety [Not Recovered/Not Resolved]
  - Illness [Unknown]
  - Renal disorder [Unknown]
  - Blood glucose abnormal [Unknown]
  - Acne [Recovered/Resolved with Sequelae]
  - Blood creatinine increased [Unknown]
  - Insomnia [Not Recovered/Not Resolved]
  - Movement disorder [Unknown]
  - Chills [Unknown]
  - Blister [Unknown]
  - Skin haemorrhage [Unknown]
  - Eating disorder [Not Recovered/Not Resolved]
  - Productive cough [Unknown]
  - Bronchitis [Recovered/Resolved]
  - Pruritus [Recovered/Resolved with Sequelae]
  - Skin lesion [Unknown]
  - Feeling cold [Unknown]
  - Dysstasia [Unknown]
  - Affective disorder [Not Recovered/Not Resolved]
  - Urticaria [Unknown]
  - Helplessness [Unknown]
  - Affective disorder [Unknown]
  - Confusional state [Unknown]
  - Intrusive thoughts [Unknown]
  - Fall [Unknown]
  - Urinary tract infection [Not Recovered/Not Resolved]
  - Skin discolouration [Unknown]
  - Speech disorder [Unknown]
  - Feeling of despair [Unknown]
  - Pruritus [Recovered/Resolved]
  - Hypoaesthesia [Not Recovered/Not Resolved]
  - Pain of skin [Unknown]
  - Memory impairment [Unknown]
  - Pollakiuria [Unknown]
  - Impaired healing [Unknown]
  - Dry skin [Unknown]
  - Blood uric acid increased [Recovered/Resolved]
  - Cough [Not Recovered/Not Resolved]
  - Grip strength decreased [Unknown]
  - Crying [Not Recovered/Not Resolved]
  - Hyperhidrosis [Unknown]
  - Feeling abnormal [Unknown]
  - Lower limb fracture [Not Recovered/Not Resolved]
  - Blood glucose decreased [Unknown]
  - Acne [Recovered/Resolved]
  - Weight decreased [Recovered/Resolved]
  - Pruritus [Not Recovered/Not Resolved]
  - Acne [Unknown]
  - Anaemia [Unknown]
  - Blood uric acid increased [Unknown]
  - Malaise [Not Recovered/Not Resolved]
  - Glycosylated haemoglobin increased [Unknown]
  - Depression [Unknown]
  - Fatigue [Unknown]
  - Depressed mood [Not Recovered/Not Resolved]
  - Visual impairment [Unknown]
  - Blood triglycerides increased [Unknown]
  - Blood cholesterol increased [Unknown]
  - Off label use [Not Recovered/Not Resolved]
  - Inappropriate schedule of product administration [Unknown]

NARRATIVE: CASE EVENT DATE: 20170101
